FAERS Safety Report 11381135 (Version 3)
Quarter: 2018Q3

REPORT INFORMATION
  Report Type: Report from Study
  Country: DE (occurrence: DE)
  Receive Date: 20150814
  Receipt Date: 20180705
  Transmission Date: 20181010
  Serious: Yes (Other)
  Sender: FDA-Public Use
  Company Number: DE-SA-CLOF-1001977

PATIENT
  Age: 33 Year
  Sex: Male

DRUGS (12)
  1. CLOFARABINE. [Suspect]
     Active Substance: CLOFARABINE
     Indication: ACUTE MYELOID LEUKAEMIA
  2. LEVOFLOXACIN. [Concomitant]
     Active Substance: LEVOFLOXACIN
     Indication: ANTIBIOTIC PROPHYLAXIS
     Dosage: UNK UNK,UNK
     Route: 065
  3. ARA?C [Suspect]
     Active Substance: CYTARABINE
     Indication: ACUTE MYELOID LEUKAEMIA
  4. FLUCONAZOLE. [Concomitant]
     Active Substance: FLUCONAZOLE
     Indication: ANTIFUNGAL PROPHYLAXIS
     Dosage: UNK UNK,UNK
     Route: 065
  5. ACICLOVIR [Concomitant]
     Active Substance: ACYCLOVIR
     Indication: ANTIVIRAL PROPHYLAXIS
     Dosage: 5 MG/KG,QD
     Route: 065
  6. ANTI?THYMOCYTE GLOBULIN (RABBIT) NOS [Suspect]
     Active Substance: LAPINE T-LYMPHOCYTE IMMUNE GLOBULIN
     Indication: BONE MARROW CONDITIONING REGIMEN
     Dosage: UNK UNK,UNK
     Route: 065
  7. CYCLOPHOSPHAMIDE. [Suspect]
     Active Substance: CYCLOPHOSPHAMIDE
     Indication: BONE MARROW CONDITIONING REGIMEN
     Dosage: UNK UNK,UNK
     Route: 065
  8. CLOFARABINE. [Suspect]
     Active Substance: CLOFARABINE
     Indication: CYTOREDUCTIVE SURGERY
     Dosage: 30 MG/M2,QD
     Route: 041
  9. ARA?C [Suspect]
     Active Substance: CYTARABINE
     Indication: CYTOREDUCTIVE SURGERY
     Dosage: 1000 MG/M2,QD
     Route: 041
  10. CYCLOSPORINE. [Concomitant]
     Active Substance: CYCLOSPORINE
     Indication: PROPHYLAXIS AGAINST GRAFT VERSUS HOST DISEASE
     Dosage: UNK UNK,UNK
     Route: 065
  11. METRONIDAZOLE. [Concomitant]
     Active Substance: METRONIDAZOLE
     Indication: ANTIBIOTIC PROPHYLAXIS
     Dosage: UNK UNK,UNK
     Route: 065
  12. MYCOPHENOLATE MOFETIL. [Concomitant]
     Active Substance: MYCOPHENOLATE MOFETIL
     Indication: PROPHYLAXIS AGAINST GRAFT VERSUS HOST DISEASE
     Dosage: 10 MG/KG,TID
     Route: 065

REACTIONS (8)
  - Oedema [Unknown]
  - Haematotoxicity [Unknown]
  - Blood bilirubin increased [Recovered/Resolved]
  - Hepatotoxicity [Recovered/Resolved]
  - Aspartate aminotransferase increased [Recovered/Resolved]
  - Alanine aminotransferase increased [Recovered/Resolved]
  - Pyrexia [Unknown]
  - Nausea [Unknown]
